FAERS Safety Report 13878828 (Version 5)
Quarter: 2018Q2

REPORT INFORMATION
  Report Type: Report from Study
  Country: US (occurrence: US)
  Receive Date: 20170817
  Receipt Date: 20180411
  Transmission Date: 20180711
  Serious: No
  Sender: FDA-Public Use
  Company Number: PHEH2017US026069

PATIENT
  Age: 20 Year
  Sex: Female

DRUGS (6)
  1. GILENYA [Suspect]
     Active Substance: FINGOLIMOD HYDROCHLORIDE
     Dosage: UNK, QOD
     Route: 065
  2. GILENYA [Suspect]
     Active Substance: FINGOLIMOD HYDROCHLORIDE
     Indication: MULTIPLE SCLEROSIS
     Dosage: 0.5 MG, QD
     Route: 048
     Dates: start: 20170812
  3. VITAMIN D [Concomitant]
     Active Substance: CHOLECALCIFEROL
     Indication: PRODUCT USED FOR UNKNOWN INDICATION
     Dosage: UNK
     Route: 065
  4. COPAXONE [Concomitant]
     Active Substance: GLATIRAMER ACETATE
     Indication: PRODUCT USED FOR UNKNOWN INDICATION
     Dosage: UNK
     Route: 065
  5. IBUPROFEN. [Concomitant]
     Active Substance: IBUPROFEN
     Indication: PRODUCT USED FOR UNKNOWN INDICATION
     Dosage: UNK
     Route: 065
  6. TYLENOL [Concomitant]
     Active Substance: ACETAMINOPHEN
     Indication: PRODUCT USED FOR UNKNOWN INDICATION
     Dosage: UNK
     Route: 065

REACTIONS (6)
  - Paraesthesia [Recovered/Resolved]
  - Tremor [Recovered/Resolved]
  - White blood cell count decreased [Unknown]
  - Headache [Unknown]
  - Headache [Recovered/Resolved]
  - Prescribed underdose [Unknown]

NARRATIVE: CASE EVENT DATE: 20170812
